FAERS Safety Report 9138988 (Version 1)
Quarter: 2013Q1

REPORT INFORMATION
  Report Type: Spontaneous
  Country: JP (occurrence: JP)
  Receive Date: 20130305
  Receipt Date: 20130305
  Transmission Date: 20140127
  Serious: Yes (Other)
  Sender: FDA-Public Use
  Company Number: JP-ELI_LILLY_AND_COMPANY-JP201302009000

PATIENT
  Sex: Male

DRUGS (2)
  1. CYMBALTA [Suspect]
     Route: 048
  2. SOLANAX [Concomitant]
     Dosage: 0.8 MG, TID
     Route: 048

REACTIONS (3)
  - Loss of consciousness [Recovered/Resolved]
  - Fall [Recovered/Resolved]
  - Delirium [Recovered/Resolved]
